FAERS Safety Report 18602039 (Version 2)
Quarter: 2021Q1

REPORT INFORMATION
  Report Type: Report from Study
  Country: US (occurrence: US)
  Receive Date: 20201210
  Receipt Date: 20210208
  Transmission Date: 20210419
  Serious: No
  Sender: FDA-Public Use
  Company Number: NVSC2020US329661

PATIENT
  Age: 33 Year
  Sex: Male

DRUGS (1)
  1. KESIMPTA [Suspect]
     Active Substance: OFATUMUMAB
     Indication: MULTIPLE SCLEROSIS
     Dosage: BENEATH THE SKIN
     Route: 058
     Dates: start: 20201118

REACTIONS (2)
  - Injection related reaction [Unknown]
  - Bedridden [Unknown]

NARRATIVE: CASE EVENT DATE: 20201118
